FAERS Safety Report 9696888 (Version 2)
Quarter: 2013Q4

REPORT INFORMATION
  Report Type: Spontaneous
  Country: US (occurrence: US)
  Receive Date: 20131119
  Receipt Date: 20131119
  Transmission Date: 20140711
  Serious: No
  Sender: FDA-Public Use
  Company Number: US-GILEAD-2007-0013419

PATIENT
  Age: 54 Year
  Sex: Female
  Weight: 73.03 kg

DRUGS (8)
  1. LETAIRIS [Suspect]
     Indication: PULMONARY ARTERIAL HYPERTENSION
     Route: 048
     Dates: start: 20070719
  2. OXYGEN [Concomitant]
     Indication: PULMONARY ARTERIAL HYPERTENSION
  3. VIACTIV [Concomitant]
     Indication: NUTRITIONAL SUPPLEMENTATION
     Route: 048
  4. DARVOCET [Concomitant]
     Indication: PAIN
     Route: 048
  5. CLARITIN [Concomitant]
     Indication: HYPERSENSITIVITY
     Route: 048
  6. GINGER [Concomitant]
     Indication: NUTRITIONAL SUPPLEMENTATION
     Route: 048
  7. GARLIC [Concomitant]
     Indication: NUTRITIONAL SUPPLEMENTATION
     Route: 048
  8. ASPIRIN [Concomitant]
     Indication: PAIN
     Route: 048

REACTIONS (1)
  - Nasal congestion [Not Recovered/Not Resolved]
